FAERS Safety Report 6466181-3 (Version None)
Quarter: 2009Q4

REPORT INFORMATION
  Report Type: 
  Country: None (occurrence: None)
  Receive Date: 20091202
  Receipt Date: 20091125
  Transmission Date: 20100525
  Serious: Yes (Life-Threatening)
  Sender: FDA-Public Use
  Company Number: US-TYCO HEALTHCARE/MALLINCKRODT-T200801207

PATIENT

DRUGS (2)
  1. OCTREOSCAN [Suspect]
     Indication: NEUROENDOCRINE TUMOUR
     Dosage: FIRST CYCLE
  2. OCTREOSCAN [Suspect]
     Dosage: SECOND CYCLE

REACTIONS (4)
  - GASTROINTESTINAL HAEMORRHAGE [None]
  - HAEMOGLOBIN DECREASED [None]
  - INTENTIONAL DRUG MISUSE [None]
  - RED BLOOD CELL COUNT DECREASED [None]
